FAERS Safety Report 23593576 (Version 1)
Quarter: 2024Q1

REPORT INFORMATION
  Report Type: Report from Study
  Country: CO (occurrence: CO)
  Receive Date: 20240304
  Receipt Date: 20240304
  Transmission Date: 20240409
  Serious: No
  Sender: FDA-Public Use
  Company Number: CO-JNJFOC-20240154089

PATIENT
  Age: 45 Year
  Sex: Female
  Weight: 76 kg

DRUGS (2)
  1. TREMFYA [Suspect]
     Active Substance: GUSELKUMAB
     Indication: Psoriasis
     Route: 058
     Dates: start: 20230729
  2. TREMFYA [Suspect]
     Active Substance: GUSELKUMAB

REACTIONS (7)
  - Syringe issue [Unknown]
  - Underdose [Unknown]
  - Hyperkeratosis [Not Recovered/Not Resolved]
  - Skin plaque [Not Recovered/Not Resolved]
  - Skin fissures [Not Recovered/Not Resolved]
  - Pruritus [Not Recovered/Not Resolved]
  - Product administration error [Unknown]

NARRATIVE: CASE EVENT DATE: 20231229
